FAERS Safety Report 25461738 (Version 1)
Quarter: 2025Q2

REPORT INFORMATION
  Report Type: Spontaneous
  Country: US (occurrence: None)
  Receive Date: 20250611
  Receipt Date: 20250611
  Transmission Date: 20250716
  Serious: Yes (Hospitalization, Disabling, Other)
  Sender: FDA-CTU
  Company Number: None

PATIENT
  Age: 29 Year
  Sex: Male
  Weight: 124.74 kg

DRUGS (1)
  1. DULOXETINE [Suspect]
     Active Substance: DULOXETINE
     Indication: Anxiety
     Dosage: 1 CAPSULE IN THE MORNING TAKEN BY MOUTH ?
     Route: 048
     Dates: start: 20150515, end: 20240813

REACTIONS (7)
  - Gastrointestinal disorder [None]
  - Inflammation [None]
  - Mood swings [None]
  - Tinnitus [None]
  - Burning sensation [None]
  - Peripheral coldness [None]
  - Feeling abnormal [None]

NARRATIVE: CASE EVENT DATE: 20241105
